FAERS Safety Report 18207856 (Version 1)
Quarter: 2020Q3

REPORT INFORMATION
  Report Type: Spontaneous
  Country: US (occurrence: US)
  Receive Date: 20200827
  Receipt Date: 20200827
  Transmission Date: 20201103
  Serious: Yes (Other)
  Sender: FDA-Public Use
  Company Number: None

PATIENT
  Age: 37 Year
  Sex: Female

DRUGS (1)
  1. WISH HAND SANITIZER [Suspect]
     Active Substance: ALCOHOL

REACTIONS (7)
  - Nonspecific reaction [None]
  - Nausea [None]
  - Headache [None]
  - Nervous system disorder [None]
  - Presyncope [None]
  - Dizziness [None]
  - Somnolence [None]
